FAERS Safety Report 4985349-6 (Version None)
Quarter: 2006Q1

REPORT INFORMATION
  Report Type: 
  Country: None (occurrence: None)
  Receive Date: 20060309
  Receipt Date: 20051101
  Transmission Date: 20060701
  Serious: Yes (Other)
  Sender: FDA-Public Use
  Company Number: 402062

PATIENT
  Age: 16 Year
  Sex: Male
  Weight: 104.3 kg

DRUGS (2)
  1. ACCUTANE [Suspect]
     Indication: ACNE CYSTIC
     Dosage: 20 MG 3 PER DAY ORAL
     Route: 048
     Dates: start: 20040409, end: 20040915
  2. CLARAVIS [Suspect]
     Indication: ACNE CYSTIC
     Dosage: 40 MG 2 PER DAY ORAL
     Route: 048
     Dates: start: 20050115, end: 20050315

REACTIONS (6)
  - BLOOD GLUCOSE INCREASED [None]
  - BLOOD TRIGLYCERIDES INCREASED [None]
  - DIABETES MELLITUS [None]
  - POLYDIPSIA [None]
  - POLYURIA [None]
  - WEIGHT DECREASED [None]
